FAERS Safety Report 10689725 (Version 4)
Quarter: 2015Q2

REPORT INFORMATION
  Report Type: Spontaneous
  Country: US (occurrence: None)
  Receive Date: 20141231
  Receipt Date: 20150505
  Transmission Date: 20150821
  Serious: Yes (Hospitalization, Other)
  Sender: FDA-Public Use
  Company Number: ADR-2013-01890

PATIENT
  Age: 32 Year
  Sex: Female

DRUGS (1)
  1. LIORESAL [Suspect]
     Active Substance: BACLOFEN
     Indication: MUSCLE SPASTICITY

REACTIONS (30)
  - Chest discomfort [None]
  - Overdose [None]
  - Irritability [None]
  - Nodule [None]
  - Arthropod sting [None]
  - Hypertonia [None]
  - Hyperhidrosis [None]
  - Device malfunction [None]
  - Vomiting [None]
  - Dyskinesia [None]
  - Tremor [None]
  - Hallucination, visual [None]
  - Pruritus [None]
  - Muscle rigidity [None]
  - Urinary tract infection [None]
  - Movement disorder [None]
  - Unevaluable event [None]
  - Device leakage [None]
  - Pruritus generalised [None]
  - Muscle spasms [None]
  - Device damage [None]
  - Device connection issue [None]
  - Abasia [None]
  - Device information output issue [None]
  - Muscle tightness [None]
  - Impaired healing [None]
  - Headache [None]
  - Dysstasia [None]
  - Hypotonia [None]
  - Device kink [None]

NARRATIVE: CASE EVENT DATE: 20131011
